FAERS Safety Report 5085543-2 (Version None)
Quarter: 2006Q3

REPORT INFORMATION
  Report Type: 
  Country: None (occurrence: None)
  Receive Date: 20060817
  Receipt Date: 20060804
  Transmission Date: 20061208
  Serious: Yes (Other)
  Sender: FDA-Public Use
  Company Number: 2006097221

PATIENT
  Sex: Female
  Weight: 65.7716 kg

DRUGS (5)
  1. ZYRTEC-D 12 HOUR [Suspect]
     Indication: SEASONAL ALLERGY
  2. SEREVENT [Concomitant]
  3. MONTELUKAST SODIUM [Concomitant]
  4. FLOVENT [Concomitant]
  5. ORTHO TRI-CYCLEN [Concomitant]

REACTIONS (3)
  - ALOPECIA [None]
  - BRONCHIAL OEDEMA [None]
  - STRESS [None]
